FAERS Safety Report 6431025-2 (Version None)
Quarter: 2009Q4

REPORT INFORMATION
  Report Type: 
  Country: None (occurrence: None)
  Receive Date: 20091106
  Receipt Date: 20091029
  Transmission Date: 20100525
  Serious: Yes (Other)
  Sender: FDA-Public Use
  Company Number: US-SANOFI-SYNTHELABO-A03200905050

PATIENT
  Sex: Male

DRUGS (4)
  1. TOPICAL ANESTHESIA [Concomitant]
     Indication: INJECTION SITE ANAESTHESIA
     Route: 061
     Dates: start: 20091027, end: 20091027
  2. NEXIUM [Concomitant]
     Indication: DRUG USE FOR UNKNOWN INDICATION
     Dosage: UNK
     Route: 065
  3. MULTAQ [Suspect]
     Indication: ATRIAL FIBRILLATION
     Route: 048
     Dates: start: 20091026
  4. AVASTIN [Concomitant]
     Indication: DRUG USE FOR UNKNOWN INDICATION
     Dosage: UNK
     Route: 065

REACTIONS (6)
  - ASTHENIA [None]
  - ATRIAL FIBRILLATION [None]
  - DIZZINESS POSTURAL [None]
  - EAR CONGESTION [None]
  - FATIGUE [None]
  - HYPOTENSION [None]
